FAERS Safety Report 8272572 (Version 4)
Quarter: 2013Q4

REPORT INFORMATION
  Report Type: Spontaneous
  Country: US (occurrence: US)
  Receive Date: 20111202
  Receipt Date: 20131209
  Transmission Date: 20140711
  Serious: Yes (Other)
  Sender: FDA-Public Use
  Company Number: US-ROCHE-1018127

PATIENT
  Age: 45 Year
  Sex: Female
  Weight: 67.19 kg

DRUGS (5)
  1. ACCUTANE [Suspect]
     Indication: ACNE
     Route: 065
     Dates: start: 200004, end: 200012
  2. ACCUTANE [Suspect]
     Route: 065
     Dates: start: 200301, end: 200306
  3. ACCUTANE [Suspect]
     Route: 048
     Dates: start: 200407, end: 200412
  4. AMNESTEEM [Suspect]
     Indication: PRODUCT USED FOR UNKNOWN INDICATION
     Route: 065
     Dates: start: 200212, end: 200303
  5. BIRTH CONTROL PILLS NOS [Concomitant]

REACTIONS (7)
  - Colitis ulcerative [Unknown]
  - Inflammatory bowel disease [Unknown]
  - Diverticulitis [Unknown]
  - Haemorrhoids [Unknown]
  - Depression [Unknown]
  - Anxiety [Unknown]
  - Injury [Unknown]
